FAERS Safety Report 6068615-5 (Version None)
Quarter: 2009Q1

REPORT INFORMATION
  Report Type: 
  Country: None (occurrence: None)
  Receive Date: 20090206
  Receipt Date: 20090115
  Transmission Date: 20090719
  Serious: Yes (Other)
  Sender: FDA-Public Use
  Company Number: BR-PFIZER INC-2008161378

PATIENT

DRUGS (3)
  1. FELDENE [Suspect]
     Indication: PAIN
     Dosage: 20 MG, AS NEEDED
     Route: 048
  2. FEMARA [Concomitant]
     Dosage: UNK
  3. MODURETIC 5-50 [Concomitant]
     Dosage: UNK

REACTIONS (2)
  - BREAST CANCER [None]
  - GASTROINTESTINAL DISORDER [None]
